FAERS Safety Report 10740731 (Version 2)
Quarter: 2015Q1

REPORT INFORMATION
  Report Type: Spontaneous
  Country: PT (occurrence: None)
  Receive Date: 20150123
  Receipt Date: 20150130
  Transmission Date: 20150721
  Serious: Yes (Other)
  Sender: FDA-Public Use
  Company Number: E2B_80003640

PATIENT
  Age: 58 Year
  Sex: Female
  Weight: 55 kg

DRUGS (6)
  1. ALPRAZOLAM. [Concomitant]
     Active Substance: ALPRAZOLAM
  2. FLEXIBAN (CYCLOBENZAPRINE HYDROCHLORIDE) [Concomitant]
  3. EUTIROX [Suspect]
     Active Substance: LEVOTHYROXINE SODIUM
     Indication: PRODUCT USED FOR UNKNOWN INDICATION
     Dosage: 0.05 MG (0.05 MGK 1 IN 1 D), ORAL
     Route: 048
     Dates: start: 20141203, end: 20141206
  4. DUCOLAX /00064401/ (BISACODYL) [Concomitant]
  5. ACETYLCYSTEINE. [Concomitant]
     Active Substance: ACETYLCYSTEINE
  6. NAPROXEN. [Concomitant]
     Active Substance: NAPROXEN

REACTIONS (4)
  - Face oedema [None]
  - Pruritus [None]
  - Feeling hot [None]
  - Erythema [None]

NARRATIVE: CASE EVENT DATE: 20141206
